FAERS Safety Report 9665992 (Version 1)
Quarter: 2013Q4

REPORT INFORMATION
  Report Type: Spontaneous
  Country: US (occurrence: None)
  Receive Date: 20131101
  Receipt Date: 20131101
  Transmission Date: 20140711
  Serious: No
  Sender: FDA-Public Use
  Company Number: None

PATIENT
  Age: 62 Year
  Sex: Male

DRUGS (1)
  1. RIVARIRIN (WARRICK) RIBAVIRIN (+) INTERFERON ALFA-2B) CAPSULE [Suspect]
     Indication: CHRONIC HEPATITIS C
     Route: 048
     Dates: start: 20130710

REACTIONS (4)
  - Anaemia [None]
  - Dyspnoea [None]
  - Chronic obstructive pulmonary disease [None]
  - Dizziness [None]
